FAERS Safety Report 22154271 (Version 3)
Quarter: 2023Q2

REPORT INFORMATION
  Report Type: Report from Study
  Country: CN (occurrence: CN)
  Receive Date: 20230330
  Receipt Date: 20230421
  Transmission Date: 20230722
  Serious: Yes (Death, Hospitalization)
  Sender: FDA-Public Use
  Company Number: CN-002147023-NVSC2023CN071069

PATIENT
  Age: 64 Year
  Sex: Male
  Weight: 65 kg

DRUGS (7)
  1. DABRAFENIB [Suspect]
     Active Substance: DABRAFENIB
     Indication: Non-small cell lung cancer metastatic
     Dosage: 150 MG, BID
     Route: 048
     Dates: start: 20221018
  2. TRAMETINIB [Suspect]
     Active Substance: TRAMETINIB
     Indication: Non-small cell lung cancer metastatic
     Dosage: 2 MG, QD
     Route: 048
     Dates: start: 20221018
  3. INSULIN ASPART [Concomitant]
     Active Substance: INSULIN ASPART
     Indication: Type 2 diabetes mellitus
     Dosage: UNK
     Route: 065
     Dates: start: 2002
  4. INSULIN DETEMIR [Concomitant]
     Active Substance: INSULIN DETEMIR
     Indication: Type 2 diabetes mellitus
     Dosage: UNK
     Route: 065
     Dates: start: 2002
  5. MINERALS NOS [Concomitant]
     Active Substance: MINERALS
     Indication: Supplementation therapy
     Dosage: UNK
     Route: 065
     Dates: start: 2018
  6. ASPARTIC ACID [Concomitant]
     Active Substance: ASPARTIC ACID
     Indication: Cerebral infarction
     Dosage: UNK (ENTERIC-COATED TABLETS)
     Route: 065
     Dates: start: 202109
  7. ATORVASTATIN CALCIUM [Concomitant]
     Active Substance: ATORVASTATIN CALCIUM
     Indication: Cerebral infarction
     Dosage: UNK
     Route: 065
     Dates: start: 202109

REACTIONS (1)
  - Sepsis [Fatal]

NARRATIVE: CASE EVENT DATE: 20230324
